FAERS Safety Report 5825144-9 (Version None)
Quarter: 2008Q3

REPORT INFORMATION
  Report Type: 
  Country: None (occurrence: None)
  Receive Date: 20080723
  Receipt Date: 20080708
  Transmission Date: 20090109
  Serious: Yes (Other)
  Sender: FDA-Public Use
  Company Number: 2008S1007958

PATIENT
  Age: 56 Year
  Sex: Male
  Weight: 90.7194 kg

DRUGS (3)
  1. BYSTOLIC [Suspect]
     Indication: HYPERTENSION
     Dosage: 10 MG;DAILY;ORAL, 5 MG; DAILY;ORAL, 2.5 MG;DAILY;ORAL
     Route: 048
     Dates: start: 20080502, end: 20080506
  2. BYSTOLIC [Suspect]
     Indication: HYPERTENSION
     Dosage: 10 MG;DAILY;ORAL, 5 MG; DAILY;ORAL, 2.5 MG;DAILY;ORAL
     Route: 048
     Dates: start: 20080430
  3. BYSTOLIC [Suspect]
     Indication: HYPERTENSION
     Dosage: 10 MG;DAILY;ORAL, 5 MG; DAILY;ORAL, 2.5 MG;DAILY;ORAL
     Route: 048
     Dates: start: 20080507

REACTIONS (3)
  - MUSCLE SPASMS [None]
  - NAUSEA [None]
  - VERTIGO [None]
